FAERS Safety Report 8790574 (Version 1)
Quarter: 2012Q4

REPORT INFORMATION
  Report Type: Spontaneous
  Country: US (occurrence: None)
  Receive Date: 20120912
  Receipt Date: 20120912
  Transmission Date: 20130627
  Serious: No
  Sender: FDA-Public Use
  Company Number: None

PATIENT
  Age: 84 Year
  Sex: Male
  Weight: 79.2 kg

DRUGS (1)
  1. CEFAZOLIN [Suspect]
     Indication: DIABETES MELLITUS
     Route: 042
     Dates: start: 20120807, end: 20120809

REACTIONS (3)
  - Rash [None]
  - Urticaria [None]
  - Pruritus [None]
